FAERS Safety Report 9448767 (Version 2)
Quarter: 2013Q3

REPORT INFORMATION
  Report Type: Report from Study
  Country: IL (occurrence: IL)
  Receive Date: 20130808
  Receipt Date: 20130903
  Transmission Date: 20140515
  Serious: Yes (Other)
  Sender: FDA-Public Use
  Company Number: PHHY2013IL084970

PATIENT
  Sex: Female

DRUGS (6)
  1. SANDOSTATIN LAR [Suspect]
     Indication: CARCINOID TUMOUR
     Dosage: 30 MG
     Dates: start: 20120409
  2. SANDOSTATIN LAR [Suspect]
     Dosage: 30 MG, ONCE IN EVERY 4 WEEKS
     Dates: start: 20120423
  3. SANDOSTATIN LAR [Suspect]
     Dosage: 30 MG, ONCE IN EVERY 4 WEEKS
     Dates: start: 20130901
  4. NEUPOGEN [Concomitant]
     Dosage: UNK UKN, UNK
  5. DOXORUBICIN [Concomitant]
     Dosage: UNK UKN, UNK
  6. CYCLOPHOSPHAMIDE [Concomitant]
     Dosage: UNK UKN, UNK

REACTIONS (2)
  - Abdominal neoplasm [Unknown]
  - Breast mass [Unknown]
